FAERS Safety Report 17944671 (Version 1)
Quarter: 2020Q2

REPORT INFORMATION
  Report Type: Spontaneous
  Country: US (occurrence: US)
  Receive Date: 20200625
  Receipt Date: 20200625
  Transmission Date: 20200714
  Serious: Yes (Other)
  Sender: FDA-Public Use
  Company Number: US-SA-2020SA161007

PATIENT

DRUGS (1)
  1. LANTUS SOLOSTAR [Suspect]
     Active Substance: INSULIN GLARGINE
     Indication: TYPE 2 DIABETES MELLITUS
     Dosage: 22 IU, QD
     Route: 065

REACTIONS (6)
  - Feeling abnormal [Unknown]
  - COVID-19 [Unknown]
  - Hypoaesthesia [Unknown]
  - Malaise [Unknown]
  - Amnesia [Unknown]
  - Movement disorder [Unknown]
